FAERS Safety Report 6770428-3 (Version None)
Quarter: 2010Q2

REPORT INFORMATION
  Report Type: 
  Country: None (occurrence: None)
  Receive Date: 20100608
  Receipt Date: 20100601
  Transmission Date: 20101027
  Serious: Yes (Hospitalization, Other)
  Sender: FDA-Public Use
  Company Number: 2009SP030816

PATIENT
  Age: 29 Year
  Sex: Female
  Weight: 88 kg

DRUGS (4)
  1. NUVARING [Suspect]
     Indication: CONTRACEPTION
     Dates: start: 20070301, end: 20071019
  2. ALEVE (CAPLET) [Concomitant]
  3. LEVSIN [Concomitant]
  4. CYMBALTA [Concomitant]

REACTIONS (16)
  - ALANINE AMINOTRANSFERASE DECREASED [None]
  - APHASIA [None]
  - ASPARTATE AMINOTRANSFERASE DECREASED [None]
  - BLOOD POTASSIUM DECREASED [None]
  - CAROTID ARTERY OCCLUSION [None]
  - CEREBRAL HAEMORRHAGE [None]
  - CEREBRAL ISCHAEMIA [None]
  - CONSTIPATION [None]
  - GASTROINTESTINAL HAEMORRHAGE [None]
  - HAEMOGLOBIN DECREASED [None]
  - HIGH DENSITY LIPOPROTEIN DECREASED [None]
  - LOW DENSITY LIPOPROTEIN INCREASED [None]
  - PROCTALGIA [None]
  - RECTAL HAEMORRHAGE [None]
  - RETINAL HAEMORRHAGE [None]
  - WEIGHT DECREASED [None]
